FAERS Safety Report 17647073 (Version 1)
Quarter: 2020Q2

REPORT INFORMATION
  Report Type: Spontaneous
  Country: FR (occurrence: FR)
  Receive Date: 20200409
  Receipt Date: 20200409
  Transmission Date: 20200713
  Serious: Yes (Hospitalization)
  Sender: FDA-Public Use
  Company Number: FR-ASTRAZENECA-2020SE45692

PATIENT
  Age: 82 Year
  Sex: Male
  Weight: 55 kg

DRUGS (3)
  1. HEPARIN SODIUM PANPHARMA [Suspect]
     Active Substance: HEPARIN SODIUM
     Indication: STENT PLACEMENT
     Dosage: 4900.0IU ONCE/SINGLE ADMINISTRATION
     Route: 042
     Dates: start: 20200228, end: 20200228
  2. BRILIQUE [Suspect]
     Active Substance: TICAGRELOR
     Indication: STENT PLACEMENT
     Dosage: 180.0MG ONCE/SINGLE ADMINISTRATION
     Route: 048
     Dates: start: 20200228, end: 20200228
  3. ASPEGIC [AMINOACETIC ACID\ACETYLSALICYLATE LYSINE] [Suspect]
     Active Substance: ASPIRIN DL-LYSINE\GLYCINE
     Indication: STENT PLACEMENT
     Dosage: 250.0MG ONCE/SINGLE ADMINISTRATION
     Route: 042
     Dates: start: 20200228, end: 20200228

REACTIONS (2)
  - Thrombosis [Recovered/Resolved with Sequelae]
  - Drug ineffective [Recovered/Resolved with Sequelae]

NARRATIVE: CASE EVENT DATE: 20200228
